FAERS Safety Report 4849495-X (Version None)
Quarter: 2005Q4

REPORT INFORMATION
  Report Type: 
  Country: None (occurrence: None)
  Receive Date: 20051207
  Receipt Date: 20051128
  Transmission Date: 20060501
  Serious: Yes (Other)
  Sender: FDA-Public Use
  Company Number: 2005162100

PATIENT
  Sex: Female

DRUGS (1)
  1. DEPO-PROVERA [Suspect]
     Indication: CONTRACEPTION
     Dosage: 150 MG (150 MG, EVERY THREE MONTS, 1ST INJECTION)
     Dates: start: 20020201

REACTIONS (5)
  - ACNE [None]
  - HYPERHIDROSIS [None]
  - MIGRAINE [None]
  - OILY SKIN [None]
  - WEIGHT INCREASED [None]
